FAERS Safety Report 21661161 (Version 1)
Quarter: 2022Q4

REPORT INFORMATION
  Report Type: Report from Study
  Country: KR (occurrence: KR)
  Receive Date: 20221130
  Receipt Date: 20221130
  Transmission Date: 20230112
  Serious: Yes (Other)
  Sender: FDA-Public Use
  Company Number: KR-Vifor Pharma-VIT-2022-08307

PATIENT
  Age: 50 Year
  Sex: Male
  Weight: 49.7 kg

DRUGS (6)
  1. VELPHORO [Suspect]
     Active Substance: SUCROFERRIC OXYHYDROXIDE
     Indication: Chronic kidney disease
     Dosage: 1 DOSAGE FORM TWICE DAILY
     Route: 048
     Dates: start: 20220712, end: 20220809
  2. CARVEDILOL [Concomitant]
     Active Substance: CARVEDILOL
     Indication: Hypertension
     Route: 048
     Dates: start: 201111
  3. NORVASC [Concomitant]
     Active Substance: AMLODIPINE BESYLATE
     Indication: Hypertension
     Route: 048
     Dates: start: 201111
  4. FEBUXOSTAT [Concomitant]
     Active Substance: FEBUXOSTAT
     Indication: Prophylaxis
     Route: 048
     Dates: start: 202204
  5. FEBUXOSTAT [Concomitant]
     Active Substance: FEBUXOSTAT
     Indication: Chronic kidney disease
  6. KAROS [Concomitant]
     Indication: Chronic kidney disease
     Route: 048
     Dates: start: 202205

REACTIONS (3)
  - Melaena [Recovered/Resolved]
  - Dyspepsia [Recovered/Resolved]
  - Off label use [Unknown]

NARRATIVE: CASE EVENT DATE: 20220712
